FAERS Safety Report 18972780 (Version 1)
Quarter: 2021Q1

REPORT INFORMATION
  Report Type: Spontaneous
  Country: US (occurrence: US)
  Receive Date: 20210305
  Receipt Date: 20210305
  Transmission Date: 20210420
  Serious: No
  Sender: FDA-Public Use
  Company Number: US-JNJFOC-20210247499

PATIENT
  Age: 3 Year
  Sex: Female
  Weight: 20.43 kg

DRUGS (1)
  1. CHILDRENS MOTRIN [Suspect]
     Active Substance: IBUPROFEN
     Indication: PYREXIA
     Dosage: WHOLE CUP MEASUREMENT ONCE
     Route: 048
     Dates: start: 20210224

REACTIONS (2)
  - Failure of child resistant product closure [Unknown]
  - Accidental exposure to product by child [Unknown]

NARRATIVE: CASE EVENT DATE: 20210224
